FAERS Safety Report 22069689 (Version 1)
Quarter: 2023Q1

REPORT INFORMATION
  Report Type: Spontaneous
  Country: CN (occurrence: CN)
  Receive Date: 20230307
  Receipt Date: 20230307
  Transmission Date: 20230417
  Serious: Yes (Other)
  Sender: FDA-Public Use
  Company Number: CN-PFIZER INC-PV202300041156

PATIENT
  Age: 57 Year
  Sex: Female

DRUGS (2)
  1. CYTARABINE [Suspect]
     Active Substance: CYTARABINE
     Indication: Chemotherapy
     Dosage: 2.5 G, 1X/DAY
     Route: 041
     Dates: start: 20230130, end: 20230203
  2. CYTARABINE [Suspect]
     Active Substance: CYTARABINE
     Indication: Acute myeloid leukaemia

REACTIONS (3)
  - Nausea [Recovering/Resolving]
  - Vomiting [Recovering/Resolving]
  - Eating disorder [Recovering/Resolving]

NARRATIVE: CASE EVENT DATE: 20230202
